FAERS Safety Report 12915157 (Version 1)
Quarter: 2016Q4

REPORT INFORMATION
  Report Type: Spontaneous
  Country: US (occurrence: US)
  Receive Date: 20161106
  Receipt Date: 20161106
  Transmission Date: 20170207
  Serious: No
  Sender: FDA-Public Use
  Company Number: US-RELYPSA-RLY2016002512

PATIENT
  Sex: Male

DRUGS (18)
  1. GLUCAGON EMERGENCY KIT [Concomitant]
     Active Substance: GLUCAGON
  2. NICOTINE. [Concomitant]
     Active Substance: NICOTINE
  3. NOVOLOG [Concomitant]
     Active Substance: INSULIN ASPART
  4. PROMETHAZINE HCL [Concomitant]
     Active Substance: PROMETHAZINE HYDROCHLORIDE
  5. TRESIBA [Concomitant]
     Active Substance: INSULIN DEGLUDEC
  6. ERYTHROMYCIN BASE [Concomitant]
     Active Substance: ERYTHROMYCIN
  7. LISINOPRIL. [Concomitant]
     Active Substance: LISINOPRIL
  8. PANTOPRAZOLE SODIUM. [Concomitant]
     Active Substance: PANTOPRAZOLE SODIUM
  9. ASPIRIN. [Concomitant]
     Active Substance: ASPIRIN
  10. HYDRALAZINE HCL [Concomitant]
     Active Substance: HYDRALAZINE HYDROCHLORIDE
  11. VELTASSA [Suspect]
     Active Substance: PATIROMER
     Indication: HYPERKALAEMIA
     Dosage: 8.4 G, UNKNOWN
     Route: 065
  12. ALPRAZOLAM. [Concomitant]
     Active Substance: ALPRAZOLAM
  13. LEVOFLOXACIN. [Concomitant]
     Active Substance: LEVOFLOXACIN
  14. COREG [Concomitant]
     Active Substance: CARVEDILOL
  15. RENVELA [Concomitant]
     Active Substance: SEVELAMER CARBONATE
  16. GABAPENTIN. [Concomitant]
     Active Substance: GABAPENTIN
  17. XANAX [Concomitant]
     Active Substance: ALPRAZOLAM
  18. RENA-VITE [Concomitant]
     Active Substance: ASCORBIC ACID\BIOTIN\CALCIUM PANTOTHENATE\CYANOCOBALAMIN\FOLIC ACID\NIACINAMIDE\PYRIDOXINE HYDROCHLORIDE\RIBOFLAVIN\THIAMINE MONONITRATE

REACTIONS (1)
  - Constipation [Unknown]
